FAERS Safety Report 19380204 (Version 2)
Quarter: 2021Q3

REPORT INFORMATION
  Report Type: Spontaneous
  Country: GB (occurrence: GB)
  Receive Date: 20210607
  Receipt Date: 20210803
  Transmission Date: 20211014
  Serious: Yes (Death)
  Sender: FDA-Public Use
  Company Number: GB-AUROBINDO-AUR-APL-2021-023531

PATIENT
  Age: 20 Year
  Sex: Male
  Weight: 56 kg

DRUGS (1)
  1. PARACETAMOL [Suspect]
     Active Substance: ACETAMINOPHEN
     Indication: PRODUCT USED FOR UNKNOWN INDICATION
     Dosage: UNK QID (ONE TO BE TAKEN EVERY 4?6 HOURS UP TO FOUR TIMES A DAY)
     Route: 065
     Dates: start: 20210503, end: 20210528

REACTIONS (1)
  - Eye pruritus [Fatal]

NARRATIVE: CASE EVENT DATE: 20210504
